FAERS Safety Report 5957147-8 (Version None)
Quarter: 2008Q4

REPORT INFORMATION
  Report Type: 
  Country: None (occurrence: None)
  Receive Date: 20081118
  Receipt Date: 20081107
  Transmission Date: 20090506
  Serious: Yes (Hospitalization)
  Sender: FDA-Public Use
  Company Number: US-GENENTECH-252250

PATIENT
  Sex: Female
  Weight: 53.968 kg

DRUGS (2)
  1. BEVACIZUMAB [Suspect]
     Indication: BREAST CANCER METASTATIC
     Dosage: 880 MG, Q3W
     Route: 042
     Dates: start: 20070508
  2. XELODA [Suspect]
     Indication: BREAST CANCER METASTATIC
     Dosage: 1300 MG, BID
     Dates: start: 20070508

REACTIONS (1)
  - SPINAL COMPRESSION FRACTURE [None]
